FAERS Safety Report 7240802-X (Version None)
Quarter: 2011Q1

REPORT INFORMATION
  Report Type: 
  Country: None (occurrence: None)
  Receive Date: 20110113
  Receipt Date: 20110104
  Transmission Date: 20110831
  Serious: Yes (Hospitalization)
  Sender: FDA-Public Use
  Company Number: 2010SP000796

PATIENT
  Age: 43 Year
  Sex: Female
  Weight: 61.2356 kg

DRUGS (2)
  1. HEPARIN [Suspect]
     Indication: CEREBROVASCULAR ACCIDENT
     Dates: start: 20060101
  2. NUVARING [Suspect]
     Indication: MENORRHAGIA
     Dosage: VAG
     Route: 067
     Dates: start: 20051001, end: 20060201

REACTIONS (15)
  - UTERINE ENLARGEMENT [None]
  - HYPERTENSION [None]
  - BLOOD LACTIC ACID INCREASED [None]
  - RESPIRATORY FAILURE [None]
  - VIITH NERVE PARALYSIS [None]
  - CEREBRAL CYST [None]
  - HAEMORRHAGIC TRANSFORMATION STROKE [None]
  - CEREBRAL INFARCTION [None]
  - HYPERLIPIDAEMIA [None]
  - HEMIPLEGIA [None]
  - ELECTROENCEPHALOGRAM ABNORMAL [None]
  - HYPERCOAGULATION [None]
  - VASOGENIC CEREBRAL OEDEMA [None]
  - BRAIN NEOPLASM [None]
  - APHASIA [None]
